FAERS Safety Report 11885011 (Version 2)
Quarter: 2016Q1

REPORT INFORMATION
  Report Type: Spontaneous
  Country: US (occurrence: US)
  Receive Date: 20160104
  Receipt Date: 20160128
  Transmission Date: 20160526
  Serious: Yes (Hospitalization)
  Sender: FDA-Public Use
  Company Number: US-ACTAVIS-2015-28715

PATIENT
  Age: 25 Year
  Sex: Male

DRUGS (6)
  1. MIRTAZAPINE (ACTAVIS LABORATORIES FL) [Suspect]
     Active Substance: MIRTAZAPINE
     Indication: SLEEP DISORDER
     Dosage: 15 MG QHS
     Route: 065
  2. RISPERIDONE (WATSON LABORATORIES) [Suspect]
     Active Substance: RISPERIDONE
     Indication: DEPRESSION
     Dosage: 1 MG, DAILY
     Route: 065
  3. RISPERIDONE (WATSON LABORATORIES) [Suspect]
     Active Substance: RISPERIDONE
     Dosage: 0.5 MG QHS
     Route: 065
  4. MIRTAZAPINE (ACTAVIS LABORATORIES FL) [Suspect]
     Active Substance: MIRTAZAPINE
     Indication: APPETITE DISORDER
  5. ESCITALOPRAM [Suspect]
     Active Substance: ESCITALOPRAM OXALATE
     Indication: AUTONOMIC NERVOUS SYSTEM IMBALANCE
     Dosage: 10 MG, DAILY
     Route: 065
  6. ESCITALOPRAM [Suspect]
     Active Substance: ESCITALOPRAM OXALATE
     Indication: SUICIDAL IDEATION

REACTIONS (2)
  - Rhabdomyolysis [Recovering/Resolving]
  - Dizziness [Unknown]
